FAERS Safety Report 10004627 (Version 2)
Quarter: 2014Q3

REPORT INFORMATION
  Report Type: Spontaneous
  Country: US (occurrence: US)
  Receive Date: 20140312
  Receipt Date: 20140915
  Transmission Date: 20150326
  Serious: Yes (Disabling)
  Sender: FDA-Public Use
  Company Number: US-CELGENEUS-163-20785-14030084

PATIENT
  Age: 11 Year
  Sex: Female

DRUGS (6)
  1. FLUOXETINE [Concomitant]
     Active Substance: FLUOXETINE\FLUOXETINE HYDROCHLORIDE
     Indication: ANTIDEPRESSANT THERAPY
     Route: 065
  2. THALOMID [Suspect]
     Active Substance: THALIDOMIDE
     Indication: CHRONIC GRAFT VERSUS HOST DISEASE
     Dosage: 100 MILLIGRAM
     Route: 048
     Dates: start: 199907
  3. RESTASIS [Concomitant]
     Active Substance: CYCLOSPORINE
     Indication: DRY EYE
     Route: 047
  4. ALBUTEROL. [Concomitant]
     Active Substance: ALBUTEROL
     Indication: ASTHMA
     Route: 055
  5. FLUTICASONE [Concomitant]
     Active Substance: FLUTICASONE\FLUTICASONE PROPIONATE
     Indication: ASTHMA
     Route: 055
  6. GENTILE [Concomitant]
     Indication: DRY EYE
     Route: 047

REACTIONS (1)
  - Ovarian failure [Not Recovered/Not Resolved]

NARRATIVE: CASE EVENT DATE: 20071101
